FAERS Safety Report 8954764 (Version 3)
Quarter: 2013Q1

REPORT INFORMATION
  Report Type: Spontaneous
  Country: US (occurrence: US)
  Receive Date: 20121210
  Receipt Date: 20130201
  Transmission Date: 20140127
  Serious: Yes (Other)
  Sender: FDA-Public Use
  Company Number: PHEH2012US023705

PATIENT
  Sex: Female

DRUGS (8)
  1. DIOVAN [Suspect]
     Indication: CARDIAC DISORDER
     Dosage: 80 MG, UNK
     Dates: start: 1996
  2. ATENOLOL [Concomitant]
  3. METHOTREXATE [Concomitant]
  4. LEUCOVORIN [Concomitant]
  5. OMEPRAZOLE [Concomitant]
  6. FUROSEMIDE [Concomitant]
  7. MELOXICAM [Concomitant]
  8. ATORVASTATIN [Concomitant]

REACTIONS (1)
  - Macular degeneration [Unknown]
